FAERS Safety Report 25362418 (Version 1)
Quarter: 2025Q2

REPORT INFORMATION
  Report Type: Spontaneous
  Country: US (occurrence: US)
  Receive Date: 20250527
  Receipt Date: 20250527
  Transmission Date: 20250717
  Serious: Yes (Other)
  Sender: BAYER HEALTHCARE PHARMACEUTICALS INC.
  Company Number: US-BAYER-2025A068325

PATIENT
  Age: 0 Year
  Sex: Male
  Weight: 2.795 kg

DRUGS (1)
  1. MIRENA [Suspect]
     Active Substance: LEVONORGESTREL
     Dosage: 20?G/DAY
     Route: 015
     Dates: start: 20240226, end: 20240305

REACTIONS (2)
  - Tachycardia foetal [None]
  - Foetal exposure during pregnancy [None]

NARRATIVE: CASE EVENT DATE: 20241030
